FAERS Safety Report 16323563 (Version 2)
Quarter: 2019Q2

REPORT INFORMATION
  Report Type: Spontaneous
  Country: AU (occurrence: AU)
  Receive Date: 20190517
  Receipt Date: 20190523
  Transmission Date: 20190711
  Serious: Yes (Other)
  Sender: FDA-Public Use
  Company Number: AU-IPSEN BIOPHARMACEUTICALS, INC.-2019-07750

PATIENT
  Sex: Female
  Weight: 88 kg

DRUGS (5)
  1. DYSPORT [Suspect]
     Active Substance: ABOBOTULINUMTOXINA
     Indication: FACE LIFT
  2. SAXENDA [Interacting]
     Active Substance: LIRAGLUTIDE
     Indication: INCREASED APPETITE
     Route: 058
     Dates: start: 20190330
  3. DYSPORT [Suspect]
     Active Substance: ABOBOTULINUMTOXINA
     Indication: SKIN WRINKLING
     Dosage: FOREHEAD (20 UNITS), BROW (4 UNITS), FROWN LINE (15 UNITS), BROWLIFT (15 UNITS)
     Route: 030
  4. DYSPORT [Suspect]
     Active Substance: ABOBOTULINUMTOXINA
     Indication: OFF LABEL USE
  5. DYSPORT [Suspect]
     Active Substance: ABOBOTULINUMTOXINA
     Indication: SKIN WRINKLING

REACTIONS (3)
  - Nerve injury [Unknown]
  - Off label use [Unknown]
  - Drug interaction [Unknown]
